FAERS Safety Report 6964135-1 (Version None)
Quarter: 2010Q3

REPORT INFORMATION
  Report Type: 
  Country: None (occurrence: None)
  Receive Date: 20100903
  Receipt Date: 20100827
  Transmission Date: 20110219
  Serious: Yes (Other)
  Sender: FDA-Public Use
  Company Number: US-BIOGENIDEC-2009BI026374

PATIENT
  Age: 52 Year
  Sex: Female
  Weight: 62 kg

DRUGS (15)
  1. TYSABRI [Suspect]
     Indication: MULTIPLE SCLEROSIS
     Route: 042
     Dates: start: 20090609, end: 20090707
  2. CALCIUM + D [Concomitant]
  3. ADVIL LIQUI-GELS [Concomitant]
  4. FLUOXETINE HCL [Concomitant]
  5. PROVIGIL [Concomitant]
  6. TRILEPTAL [Concomitant]
  7. BACLOFEN [Concomitant]
  8. GABAPENTIN [Concomitant]
  9. BONIVA [Concomitant]
  10. MECLIZINE HCL [Concomitant]
  11. URELLE [Concomitant]
  12. MULTI-VITAMINS [Concomitant]
  13. HYOSCYAMINE [Concomitant]
  14. OXYBUTYNIN [Concomitant]
  15. FLOMAX [Concomitant]

REACTIONS (5)
  - BREAST CANCER METASTATIC [None]
  - BREAST CANCER RECURRENT [None]
  - FATIGUE [None]
  - MUSCULAR WEAKNESS [None]
  - PAIN IN EXTREMITY [None]
